FAERS Safety Report 8364997-X (Version None)
Quarter: 2012Q2

REPORT INFORMATION
  Report Type: 
  Country: None (occurrence: None)
  Receive Date: 20120516
  Receipt Date: 20120511
  Transmission Date: 20120825
  Serious: Yes (Life-Threatening, Hospitalization, Other)
  Sender: FDA-Public Use
  Company Number: US-GLAXOSMITHKLINE-A0977328A

PATIENT
  Age: 67 Year
  Sex: Female

DRUGS (2)
  1. CARVEDILOL [Suspect]
     Indication: HYPERTENSION
     Dosage: 3.125MG UNKNOWN
     Route: 048
     Dates: start: 20120201
  2. ENALAPRIL MALEATE [Concomitant]

REACTIONS (3)
  - RASH [None]
  - TREATMENT NONCOMPLIANCE [None]
  - THROMBOCYTOPENIA [None]
